FAERS Safety Report 7581655-X (Version None)
Quarter: 2011Q2

REPORT INFORMATION
  Report Type: 
  Country: None (occurrence: None)
  Receive Date: 20110629
  Receipt Date: 20110620
  Transmission Date: 20111010
  Serious: Yes (Hospitalization)
  Sender: FDA-Public Use
  Company Number: US-US-EMD SERONO, INC.-7066813

PATIENT
  Sex: Female
  Weight: 104 kg

DRUGS (1)
  1. REBIF [Suspect]
     Indication: MULTIPLE SCLEROSIS
     Route: 058
     Dates: start: 20090120

REACTIONS (5)
  - PHOTOPSIA [None]
  - LOSS OF CONSCIOUSNESS [None]
  - FROSTBITE [None]
  - CHROMATOPSIA [None]
  - PAIN IN EXTREMITY [None]
